FAERS Safety Report 8770519 (Version 2)
Quarter: 2012Q4

REPORT INFORMATION
  Report Type: 
  Country: DE (occurrence: DE)
  Receive Date: 20120906
  Receipt Date: 20120920
  Transmission Date: 20130627
  Serious: Yes (Hospitalization, Other)
  Sender: FDA-Public Use
  Company Number: DE-SANOFI-AVENTIS-2012SA062510

PATIENT
  Age: 5 Year
  Sex: Male
  Weight: 17 kg

DRUGS (11)
  1. FERRLECIT [Suspect]
     Indication: IRON DEFICIENCY
     Dosage: twice a week 12.5 mg (1 mL) in 20 mL sodium chloride for 20 minutes at dialysis
     Route: 042
     Dates: start: 20120418, end: 20120827
  2. FERRLECIT [Suspect]
     Indication: ANAEMIA
     Dosage: twice a week 12.5 mg (1 mL) in 20 mL sodium chloride for 20 minutes at dialysis
     Route: 042
     Dates: start: 20120418, end: 20120827
  3. SODIUM BICARBONATE [Concomitant]
     Indication: ACIDOSIS
     Route: 048
     Dates: start: 201204
  4. SEVELAMER [Concomitant]
     Indication: HYPERPHOSPHATAEMIA
     Route: 048
     Dates: start: 201204
  5. CEFACLOR [Concomitant]
     Indication: URINARY TRACT INFECTION
     Route: 048
     Dates: start: 201204
  6. COLECALCIFEROL [Concomitant]
     Indication: DRUG USE FOR UNKNOWN INDICATION
     Route: 048
     Dates: start: 201204
  7. ALFACALCIDOL [Concomitant]
     Indication: DRUG USE FOR UNKNOWN INDICATION
     Route: 048
     Dates: start: 201204
  8. ERYTHROPOIETIN [Concomitant]
     Indication: DRUG USE FOR UNKNOWN INDICATION
     Dosage: Dose:1000 unit(s)
     Route: 042
     Dates: start: 201204
  9. HEPARIN [Concomitant]
     Indication: DRUG USE FOR UNKNOWN INDICATION
  10. PARACETAMOL [Concomitant]
     Indication: ABDOMINAL PAIN
     Dates: start: 201208
  11. ALL OTHER THERAPEUTIC PRODUCTS [Concomitant]
     Indication: OBSTIPATION
     Dates: start: 201208

REACTIONS (8)
  - Haemolysis [Recovered/Resolved]
  - Haematuria [Recovered/Resolved]
  - Blood lactate dehydrogenase increased [Recovered/Resolved]
  - Haptoglobin decreased [Recovered/Resolved]
  - Blood potassium increased [Recovered/Resolved]
  - Haemoglobin decreased [Recovered/Resolved]
  - Haematocrit decreased [Recovered/Resolved]
  - Red blood cell count decreased [Recovered/Resolved]
